FAERS Safety Report 14272890 (Version 1)
Quarter: 2017Q4

REPORT INFORMATION
  Report Type: Spontaneous
  Country: DE (occurrence: DE)
  Receive Date: 20171212
  Receipt Date: 20171212
  Transmission Date: 20180321
  Serious: Yes (Death, Hospitalization)
  Sender: FDA-Public Use
  Company Number: DE-BAYER-2017-205767

PATIENT
  Age: 76 Year
  Sex: Female

DRUGS (23)
  1. LINEZOLID. [Concomitant]
     Active Substance: LINEZOLID
     Dosage: 600 MG, BID, 1-0-1
     Route: 042
     Dates: start: 20170902, end: 20170912
  2. NACL [Concomitant]
     Active Substance: SODIUM CHLORIDE
     Dosage: 1 DF, QID
     Route: 055
  3. TAVOR [LORAZEPAM] [Concomitant]
     Active Substance: LORAZEPAM
     Dosage: 1 MG, TID
     Route: 048
  4. LASIX [Concomitant]
     Active Substance: FUROSEMIDE
     Dosage: TID: 40MG - 40MG- 20MG
     Route: 042
  5. L-THYROXIN [Concomitant]
     Active Substance: LEVOTHYROXINE SODIUM
     Dosage: 25 ?G, QD, 1-0-0
     Route: 048
  6. FRAXIPARIN [Concomitant]
     Active Substance: NADROPARIN CALCIUM
     Dosage: 0.8 ML, QD, 0-0-1
     Route: 058
  7. CIPROBAY 400/200 MG/ML [Suspect]
     Active Substance: CIPROFLOXACIN HYDROCHLORIDE
     Dosage: 400 MG, BID, 1-0-1
     Route: 042
     Dates: start: 20170825, end: 20170831
  8. JEVITY [Concomitant]
     Active Substance: DIETARY SUPPLEMENT
     Dosage: DAILY DOSE 1000 ML
  9. NEXIUM [Concomitant]
     Active Substance: ESOMEPRAZOLE MAGNESIUM
     Dosage: 40 MG, QD, 1-0-0
     Route: 048
  10. ASPIRIN. [Concomitant]
     Active Substance: ASPIRIN
     Dosage: 100 MG, QD, 1-0-0
     Route: 048
  11. AMLODIPINE [Concomitant]
     Active Substance: AMLODIPINE BESYLATE
     Dosage: 5 MG, QD, BREAK
     Route: 048
  12. CIPROBAY 400/200 MG/ML [Suspect]
     Active Substance: CIPROFLOXACIN HYDROCHLORIDE
     Dosage: 400 MG, BID, 1-0-1
     Route: 042
     Dates: start: 20170902, end: 20170912
  13. RAMIPRIL. [Concomitant]
     Active Substance: RAMIPRIL
     Dosage: 5 MG, QD, BREAK
     Route: 048
  14. KETANEST [Concomitant]
     Active Substance: KETAMINE HYDROCHLORIDE
     Dosage: 25 MG/ML, PRN
     Route: 042
  15. PROPOFOL. [Concomitant]
     Active Substance: PROPOFOL
     Dosage: 20 MG/ML, HS
     Route: 042
  16. KALITRANS [Concomitant]
     Active Substance: POTASSIUM CHLORIDE
     Dosage: 2 DF, TID
     Route: 048
  17. MIDAZOLAM [Concomitant]
     Active Substance: MIDAZOLAM HYDROCHLORIDE
     Dosage: 5 MG/ML, PRN
     Route: 042
  18. PULMO [Concomitant]
     Dosage: 1 DF, BID
     Route: 058
  19. GENTAMICIN. [Concomitant]
     Active Substance: GENTAMICIN
     Dosage: 80 MG, BID, 1-0-1 (D9)
     Route: 055
     Dates: start: 20170906, end: 20170914
  20. SEREVENT DISKUS [Concomitant]
     Active Substance: SALMETEROL XINAFOATE
     Dosage: 2 DF, BID, 2-0-2H
     Route: 055
  21. MOVICOL [Concomitant]
     Active Substance: POLYETHYLENE GLYCOL 3350\POTASSIUM CHLORIDE\SODIUM BICARBONATE\SODIUM CHLORIDE
     Dosage: 1 DF, QD, 1-0-0
     Route: 048
  22. SULTANOL [Concomitant]
     Active Substance: ALBUTEROL SULFATE
     Dosage: 1 DF, Q4HR, 1-1-1-1-1-1
     Route: 055
  23. MORPHIN [Concomitant]
     Active Substance: MORPHINE
     Dosage: 1 UNK, PRN
     Route: 042

REACTIONS (4)
  - Pulmonary sepsis [Fatal]
  - Pneumonia escherichia [Fatal]
  - Drug-induced liver injury [Fatal]
  - Rash pustular [None]

NARRATIVE: CASE EVENT DATE: 20170912
